FAERS Safety Report 9097666 (Version 1)
Quarter: 2013Q1

REPORT INFORMATION
  Report Type: Spontaneous
  Country: AU (occurrence: AU)
  Receive Date: 20130212
  Receipt Date: 20130212
  Transmission Date: 20140127
  Serious: Yes (Other)
  Sender: FDA-Public Use
  Company Number: PHHY2013AU012548

PATIENT
  Age: 76 Year
  Sex: Female

DRUGS (2)
  1. ACLASTA [Suspect]
     Dosage: UNK UKN, UNK
     Route: 042
  2. ACLASTA [Suspect]
     Dosage: UNK UKN, UNK
     Route: 042

REACTIONS (9)
  - Blood cholesterol increased [Unknown]
  - Haemoglobin decreased [Unknown]
  - Haematocrit decreased [Unknown]
  - Red blood cell count decreased [Unknown]
  - Mean cell haemoglobin concentration decreased [Unknown]
  - Blood albumin increased [Unknown]
  - Blood urea increased [Unknown]
  - Blood creatine increased [Unknown]
  - Glomerular filtration rate decreased [Unknown]
